FAERS Safety Report 11410807 (Version 1)
Quarter: 2015Q3

REPORT INFORMATION
  Report Type: Spontaneous
  Country: US (occurrence: US)
  Receive Date: 20150821
  Receipt Date: 20150821
  Transmission Date: 20151125
  Serious: No
  Sender: FDA-Public Use
  Company Number: US-ELI_LILLY_AND_COMPANY-US200910001065

PATIENT
  Age: 34 Year
  Sex: Female

DRUGS (4)
  1. HUMULIN 70/30 [Suspect]
     Active Substance: INSULIN HUMAN
  2. HUMULIN N [Suspect]
     Active Substance: INSULIN HUMAN
  3. HUMULIN 70/30 [Suspect]
     Active Substance: INSULIN HUMAN
     Dosage: 40 U, UNK
     Dates: start: 20090918
  4. HUMULIN 70/30 [Suspect]
     Active Substance: INSULIN HUMAN
     Dosage: 30 U, UNK
     Dates: start: 200910

REACTIONS (7)
  - Visual acuity reduced [Not Recovered/Not Resolved]
  - Eye irritation [Not Recovered/Not Resolved]
  - Rash papular [Recovered/Resolved]
  - Lacrimation increased [Not Recovered/Not Resolved]
  - Malaise [Recovered/Resolved]
  - Cataract [Not Recovered/Not Resolved]
  - Eye pruritus [Not Recovered/Not Resolved]

NARRATIVE: CASE EVENT DATE: 20090918
